FAERS Safety Report 4697557-2 (Version None)
Quarter: 2005Q2

REPORT INFORMATION
  Report Type: 
  Country: None (occurrence: None)
  Receive Date: 20050622
  Receipt Date: 20050311
  Transmission Date: 20051028
  Serious: Yes (Hospitalization)
  Sender: FDA-Public Use
  Company Number: US-MERCK-0503USA02721

PATIENT
  Age: 59 Year
  Sex: Male
  Weight: 77 kg

DRUGS (5)
  1. VIOXX [Suspect]
     Indication: MONARTHRITIS
     Route: 048
     Dates: start: 19990101, end: 20040101
  2. VIOXX [Suspect]
     Route: 048
     Dates: start: 19990101, end: 20040101
  3. PREVACID [Concomitant]
     Indication: REFLUX GASTRITIS
     Route: 065
  4. XANAX [Concomitant]
     Indication: ANXIETY
     Route: 065
     Dates: start: 20020301
  5. PAXIL [Concomitant]
     Indication: ANXIETY
     Route: 065
     Dates: start: 20020301

REACTIONS (5)
  - CORONARY ARTERY DISEASE [None]
  - HERNIA [None]
  - HYPERTENSION [None]
  - MYOCARDIAL INFARCTION [None]
  - PANIC ATTACK [None]
